FAERS Safety Report 10048960 (Version 1)
Quarter: 2014Q1

REPORT INFORMATION
  Report Type: Spontaneous
  Country: SE (occurrence: SE)
  Receive Date: 20140331
  Receipt Date: 20140331
  Transmission Date: 20141002
  Serious: Yes (Other)
  Sender: FDA-Public Use
  Company Number: SE-ACTAVIS-2013-24854

PATIENT
  Sex: Female

DRUGS (1)
  1. ANTABUS [Suspect]
     Indication: BLINDNESS
     Route: 065

REACTIONS (1)
  - Blindness [Unknown]
